FAERS Safety Report 6702839-6 (Version None)
Quarter: 2010Q2

REPORT INFORMATION
  Report Type: 
  Country: None (occurrence: None)
  Receive Date: 20100429
  Receipt Date: 20100415
  Transmission Date: 20101027
  Serious: Yes (Other)
  Sender: FDA-Public Use
  Company Number: CA-ELI_LILLY_AND_COMPANY-CA201004006352

PATIENT
  Age: 40 Year
  Sex: Male

DRUGS (2)
  1. CYMBALTA [Suspect]
     Dosage: 1 D/F, UNK
     Dates: start: 20090101
  2. FLUOXETINE HYDROCHLORIDE [Suspect]
     Dosage: 60 MG, UNK

REACTIONS (4)
  - CONVULSION [None]
  - HYPERHIDROSIS [None]
  - HYPERTENSION [None]
  - SYNCOPE [None]
